FAERS Safety Report 18800358 (Version 1)
Quarter: 2021Q1

REPORT INFORMATION
  Report Type: Spontaneous
  Country: US (occurrence: US)
  Receive Date: 20210128
  Receipt Date: 20210128
  Transmission Date: 20210419
  Serious: Yes (Other)
  Sender: FDA-Public Use
  Company Number: None

PATIENT
  Age: 58 Year
  Sex: Male
  Weight: 105.75 kg

DRUGS (8)
  1. SUPER BY COMPLEX [Concomitant]
  2. VICKS NYQUIL [Concomitant]
     Active Substance: ACETAMINOPHEN\DEXTROMETHORPHAN HYDROBROMIDE\DOXYLAMINE SUCCINATE
  3. OMEGA FISH OIL [Concomitant]
     Active Substance: FISH OIL\OMEGA-3 FATTY ACIDS
  4. MULTI?VITAMIN [Concomitant]
     Active Substance: .ALPHA.-TOCOPHEROL ACETATE, DL-\ASCORBIC ACID\CYANOCOBALAMIN\FLUORIDE ION\FOLIC ACID\NIACIN\PYRIDOXINE\RIBOFLAVIN\THIAMINE\VITAMIN A\VITAMIN D
  5. ST. JOHN^S WORT [Concomitant]
     Active Substance: ST. JOHN^S WORT
  6. DICLOFENAC POT 50 MG TABLET [Suspect]
     Active Substance: DICLOFENAC POTASSIUM
     Indication: FASCIITIS
     Dosage: ?          QUANTITY:1 CAPSULE(S);?
     Dates: start: 20181103, end: 20181120
  7. METHYLPREDNISOLONE 4 MG DOSEPK [Suspect]
     Active Substance: METHYLPREDNISOLONE
     Indication: FASCIITIS
     Dosage: ?          QUANTITY:1 TABLET(S);OTHER FREQUENCY:6,5,4,3,2 AND 1 PE;?
     Route: 048
     Dates: start: 20181026, end: 20181102
  8. SAW PALMETTO [Concomitant]
     Active Substance: HERBALS\SAW PALMETTO

REACTIONS (6)
  - Pulmonary congestion [None]
  - Dizziness [None]
  - Nasopharyngitis [None]
  - Heart rate irregular [None]
  - Oropharyngeal pain [None]
  - Pyrexia [None]

NARRATIVE: CASE EVENT DATE: 20181115
